FAERS Safety Report 9310729 (Version 1)
Quarter: 2013Q2

REPORT INFORMATION
  Report Type: Spontaneous
  Country: US (occurrence: US)
  Receive Date: 20130528
  Receipt Date: 20130528
  Transmission Date: 20140414
  Serious: Yes (Other)
  Sender: FDA-Public Use
  Company Number: US-MERCK-1305USA012477

PATIENT
  Sex: Female

DRUGS (2)
  1. PEGINTRON [Suspect]
     Dosage: 0.5 ML, QW
     Route: 048
     Dates: start: 2013, end: 2013
  2. REBETOL [Suspect]
     Dosage: 600 MG, BID
     Route: 048
     Dates: start: 2013, end: 2013

REACTIONS (3)
  - Cervical vertebral fracture [Unknown]
  - Road traffic accident [Unknown]
  - Pain [Unknown]
